FAERS Safety Report 25113962 (Version 2)
Quarter: 2025Q2

REPORT INFORMATION
  Report Type: Spontaneous
  Country: US (occurrence: US)
  Receive Date: 20250324
  Receipt Date: 20250403
  Transmission Date: 20250716
  Serious: Yes (Other)
  Sender: BAXTER
  Company Number: US-BAXTER-2025BAX012840

PATIENT
  Age: 56 Year
  Sex: Male

DRUGS (1)
  1. OXACILLIN [Suspect]
     Active Substance: OXACILLIN SODIUM
     Indication: Staphylococcal bacteraemia
     Route: 065

REACTIONS (12)
  - Eosinophilic myocarditis [Unknown]
  - Dyspnoea [Unknown]
  - Exercise tolerance decreased [Unknown]
  - Generalised oedema [Unknown]
  - Oliguria [Unknown]
  - Ejection fraction decreased [Unknown]
  - Ventricular hypokinesia [Unknown]
  - Cardiac failure acute [Unknown]
  - Drug reaction with eosinophilia and systemic symptoms [Unknown]
  - Eczema [Unknown]
  - Eosinophil count increased [Unknown]
  - Rash morbilliform [Unknown]
